FAERS Safety Report 5128979-3 (Version None)
Quarter: 2006Q4

REPORT INFORMATION
  Report Type: 
  Country: None (occurrence: None)
  Receive Date: 20061017
  Receipt Date: 20061009
  Transmission Date: 20070319
  Serious: Yes (Death, Hospitalization)
  Sender: FDA-Public Use
  Company Number: US-ABBOTT-06P-163-0346379-00

PATIENT
  Sex: Male

DRUGS (5)
  1. DEPAKENE [Suspect]
     Indication: CONVULSION
     Route: 048
     Dates: end: 20060923
  2. DEPAKOTE [Suspect]
     Indication: CONVULSION
     Route: 048
     Dates: start: 19980101
  3. CARNATINE [Concomitant]
     Indication: VITAMIN SUPPLEMENTATION
     Route: 048
     Dates: start: 19980101, end: 20060923
  4. TOPRAMAX [Concomitant]
     Indication: CONVULSION
     Route: 048
     Dates: start: 20060902, end: 20060923
  5. SHOHL'S SOLUTION [Concomitant]
     Indication: ACIDOSIS
     Route: 048
     Dates: start: 20060902, end: 20060923

REACTIONS (2)
  - PANCREATITIS [None]
  - SEPTIC SHOCK [None]
